FAERS Safety Report 17276527 (Version 2)
Quarter: 2020Q1

REPORT INFORMATION
  Report Type: Spontaneous
  Country: DE (occurrence: DE)
  Receive Date: 20200116
  Receipt Date: 20200208
  Transmission Date: 20200409
  Serious: Yes (Disabling, Other)
  Sender: FDA-Public Use
  Company Number: DE-ASTRAZENECA-2020SE04276

PATIENT
  Age: 55 Year
  Sex: Female
  Weight: 59 kg

DRUGS (1)
  1. FASENRA [Suspect]
     Active Substance: BENRALIZUMAB
     Indication: ASTHMA
     Dosage: 30.0MG UNKNOWN
     Route: 058
     Dates: start: 20180226

REACTIONS (26)
  - Pain in extremity [Unknown]
  - Musculoskeletal pain [Unknown]
  - Foot deformity [Unknown]
  - Infection [Unknown]
  - Grip strength decreased [Unknown]
  - Osteochondrosis [Unknown]
  - Pneumonia [Unknown]
  - Blood lactate dehydrogenase abnormal [Unknown]
  - Blood potassium abnormal [Unknown]
  - Asthma [Unknown]
  - Nasopharyngitis [Unknown]
  - Back disorder [Unknown]
  - Bronchiectasis [Unknown]
  - Joint swelling [Recovered/Resolved]
  - Gait disturbance [Unknown]
  - Blood bilirubin abnormal [Unknown]
  - Rash pruritic [Unknown]
  - Condition aggravated [Not Recovered/Not Resolved]
  - Bronchopulmonary aspergillosis [Unknown]
  - Arthralgia [Unknown]
  - Papule [Unknown]
  - Spinal disorder [Unknown]
  - Malaise [Unknown]
  - Drug eruption [Unknown]
  - Blood glucose abnormal [Unknown]
  - Hypermobility syndrome [Unknown]

NARRATIVE: CASE EVENT DATE: 2018
